FAERS Safety Report 10687618 (Version 1)
Quarter: 2014Q4

REPORT INFORMATION
  Report Type: Spontaneous
  Country: US (occurrence: None)
  Receive Date: 20141230
  Receipt Date: 20141230
  Transmission Date: 20150529
  Serious: Yes (Hospitalization)
  Sender: FDA-Public Use
  Company Number: DEP_02415_2014

PATIENT
  Age: 31 Year
  Sex: Male

DRUGS (10)
  1. FENTANYL. [Suspect]
     Active Substance: FENTANYL
     Indication: OFF LABEL USE
     Dosage: PATIENT CONTROLLED ANALGESIA (PCA) DF
  2. GABAPENTIN. [Concomitant]
     Active Substance: GABAPENTIN
  3. OXYCODONE [Suspect]
     Active Substance: OXYCODONE
     Indication: PAIN
     Dosage: 120MG Q3H, AS NEEDED
  4. KETOROLAC [Concomitant]
     Active Substance: KETOROLAC\KETOROLAC TROMETHAMINE
  5. LEVOFLOXACIN. [Concomitant]
     Active Substance: LEVOFLOXACIN
  6. METHADONE [Suspect]
     Active Substance: METHADONE HYDROCHLORIDE
     Indication: PAIN
  7. VENLAFAXINE [Concomitant]
     Active Substance: VENLAFAXINE HYDROCHLORIDE
  8. FENTANYL. [Suspect]
     Active Substance: FENTANYL
     Indication: PNEUMONIA
     Dosage: PATIENT CONTROLLED ANALGESIA (PCA) DF
  9. OXYGEN. [Concomitant]
     Active Substance: OXYGEN
  10. FENTANYL. [Suspect]
     Active Substance: FENTANYL
     Indication: PAIN
     Dosage: PATIENT CONTROLLED ANALGESIA (PCA) DF

REACTIONS (2)
  - Hyperaesthesia [None]
  - Drug tolerance [None]
